FAERS Safety Report 6545812-3 (Version None)
Quarter: 2010Q1

REPORT INFORMATION
  Report Type: 
  Country: None (occurrence: None)
  Receive Date: 20100121
  Receipt Date: 20100111
  Transmission Date: 20100710
  Serious: Yes (Hospitalization)
  Sender: FDA-Public Use
  Company Number: RU-AMGEN-US376554

PATIENT
  Sex: Male
  Weight: 82.5 kg

DRUGS (5)
  1. ETANERCEPT [Suspect]
     Indication: RHEUMATOID ARTHRITIS
     Dosage: TREATMENT ^AB^ - ETAN 50+MTX/ETAN25+MTX
     Dates: start: 20081222, end: 20091102
  2. LISINOPRIL [Concomitant]
  3. VOLTAREN [Concomitant]
     Dates: start: 20070701
  4. METHOTREXATE [Concomitant]
     Dates: start: 20070701
  5. FOLIC ACID [Concomitant]
     Dates: start: 20050101

REACTIONS (1)
  - MALIGNANT URINARY TRACT NEOPLASM [None]
